FAERS Safety Report 23407120 (Version 1)
Quarter: 2024Q1

REPORT INFORMATION
  Report Type: Spontaneous
  Country: DE (occurrence: DE)
  Receive Date: 20240116
  Receipt Date: 20240116
  Transmission Date: 20240409
  Serious: Yes (Hospitalization)
  Sender: FDA-Public Use
  Company Number: DE-AMGEN-DEUSP2023169539

PATIENT
  Age: 49 Year
  Sex: Male
  Weight: 79 kg

DRUGS (9)
  1. PEGFILGRASTIM [Suspect]
     Active Substance: PEGFILGRASTIM
     Indication: Product used for unknown indication
     Dosage: 6 MILLIGRAM
     Route: 065
     Dates: start: 20191004, end: 20191004
  2. BLEOMYCIN [Concomitant]
     Active Substance: BLEOMYCIN SULFATE
     Indication: Product used for unknown indication
     Dosage: 10 MILLIGRAM/SQ. METER
     Route: 065
     Dates: start: 20191008, end: 20191008
  3. CYCLOPHOSPHAMIDE [Concomitant]
     Active Substance: CYCLOPHOSPHAMIDE
     Indication: Product used for unknown indication
     Dosage: 1250 MILLIGRAM PER CUBIC METRE
     Route: 065
     Dates: start: 20191001, end: 20191001
  4. DOXORUBICIN [Concomitant]
     Active Substance: DOXORUBICIN
     Indication: Product used for unknown indication
     Dosage: 35 MICROGRAM/KILOGRAM
     Route: 065
     Dates: start: 20191001, end: 20191001
  5. ETOPOSIDE [Concomitant]
     Active Substance: ETOPOSIDE
     Indication: Product used for unknown indication
     Dosage: 400 MICROGRAM PER CUBIC METRE
     Route: 065
     Dates: start: 20191001, end: 20191001
  6. PREDNISOLONE [Concomitant]
     Active Substance: PREDNISOLONE
     Indication: Product used for unknown indication
     Dosage: 40 MILLIGRAM PER CUBIC METRE
     Route: 065
     Dates: start: 20191001, end: 20191001
  7. PROCARBAZINE [Concomitant]
     Active Substance: PROCARBAZINE
     Indication: Product used for unknown indication
     Dosage: 700 MILLIGRAM/SQ. METER
     Route: 065
     Dates: start: 20191001, end: 20191001
  8. VINCRISTINE [Concomitant]
     Active Substance: VINCRISTINE
     Indication: Product used for unknown indication
     Dosage: 1 MG/M2
     Route: 065
     Dates: start: 20191008, end: 20191008
  9. VINCRISTINE SULFATE [Concomitant]
     Active Substance: VINCRISTINE SULFATE
     Indication: Product used for unknown indication
     Dosage: UNK
     Route: 065
     Dates: start: 20191001, end: 20191014

REACTIONS (1)
  - Musculoskeletal pain [Recovered/Resolved]

NARRATIVE: CASE EVENT DATE: 20191012
